FAERS Safety Report 6435678-4 (Version None)
Quarter: 2009Q4

REPORT INFORMATION
  Report Type: 
  Country: None (occurrence: None)
  Receive Date: 20091111
  Receipt Date: 20091023
  Transmission Date: 20100525
  Serious: Yes (Hospitalization)
  Sender: FDA-Public Use
  Company Number: PHHY2009CH46304

PATIENT
  Age: 63 Year
  Sex: Female

DRUGS (5)
  1. TEGRETOL-XR [Suspect]
     Dosage: 400 MG, TID
  2. KEPPRA [Suspect]
     Dosage: 1000 MG, BID
  3. MYSOLINE [Suspect]
     Dosage: 250 MG, TID
  4. IRBESARTAN [Concomitant]
     Dosage: 300 MG PER DAY
  5. ROSUVASTATIN [Concomitant]
     Dosage: 10 MG PER DAY

REACTIONS (11)
  - BACK PAIN [None]
  - BLOOD FOLATE ABNORMAL [None]
  - CARDIAC DISORDER [None]
  - FATIGUE [None]
  - GLOSSODYNIA [None]
  - MICROCYTIC ANAEMIA [None]
  - NAUSEA [None]
  - SERUM FERRITIN DECREASED [None]
  - SKIN FISSURES [None]
  - VITAMIN D DEFICIENCY [None]
  - VOMITING [None]
